FAERS Safety Report 11891752 (Version 2)
Quarter: 2016Q1

REPORT INFORMATION
  Report Type: Report from Study
  Country: US (occurrence: US)
  Receive Date: 20160106
  Receipt Date: 20160112
  Transmission Date: 20160526
  Serious: Yes (Hospitalization, Other)
  Sender: FDA-Public Use
  Company Number: US-SA-2016SA000763

PATIENT
  Age: 73 Year
  Sex: Male

DRUGS (3)
  1. PRALUENT [Suspect]
     Active Substance: ALIROCUMAB
     Indication: BLOOD CHOLESTEROL INCREASED
     Route: 065
     Dates: start: 201510
  2. PRALUENT [Suspect]
     Active Substance: ALIROCUMAB
     Indication: HYPERLIPIDAEMIA
     Route: 065
     Dates: start: 201510
  3. ALIROCUMAB PREFILLED PEN [Concomitant]
     Active Substance: ALIROCUMAB
     Indication: BLOOD CHOLESTEROL INCREASED
     Dates: start: 201509

REACTIONS (5)
  - Transient ischaemic attack [Not Recovered/Not Resolved]
  - Speech disorder [Not Recovered/Not Resolved]
  - Memory impairment [Not Recovered/Not Resolved]
  - Cerebrovascular accident [Not Recovered/Not Resolved]
  - Confusional state [Not Recovered/Not Resolved]

NARRATIVE: CASE EVENT DATE: 2015
